FAERS Safety Report 10383501 (Version 1)
Quarter: 2014Q3

REPORT INFORMATION
  Report Type: Spontaneous
  Country: FR (occurrence: FR)
  Receive Date: 20140814
  Receipt Date: 20140814
  Transmission Date: 20150326
  Serious: Yes (Hospitalization, Other)
  Sender: FDA-Public Use
  Company Number: FR-PFIZER INC-2014222383

PATIENT
  Age: 56 Year
  Sex: Female

DRUGS (4)
  1. SERESTA [Suspect]
     Active Substance: OXAZEPAM
     Dosage: 3 BOXES
     Route: 048
     Dates: start: 20140511, end: 20140511
  2. MIANSERIN HYDROCHLORIDE [Concomitant]
     Active Substance: MIANSERIN HYDROCHLORIDE
  3. LYRICA [Suspect]
     Active Substance: PREGABALIN
     Dosage: 4 DF, SINGLE
     Route: 048
     Dates: start: 20140511, end: 20140511
  4. THERALENE [Concomitant]
     Active Substance: TRIMEPRAZINE

REACTIONS (7)
  - Intentional overdose [Unknown]
  - Toxicity to various agents [Unknown]
  - Dysarthria [Unknown]
  - Suicide attempt [Unknown]
  - Disorientation [Unknown]
  - Somnolence [Recovered/Resolved]
  - Altered state of consciousness [Unknown]

NARRATIVE: CASE EVENT DATE: 20140511
